FAERS Safety Report 26151827 (Version 1)
Quarter: 2025Q4

REPORT INFORMATION
  Report Type: Spontaneous
  Country: EU (occurrence: EU)
  Receive Date: 20251214
  Receipt Date: 20251214
  Transmission Date: 20260117
  Serious: Yes (Other)
  Sender: TEVA
  Company Number: EU-TEVA-VS-3401322

PATIENT
  Age: 58 Year
  Sex: Male

DRUGS (1)
  1. COPAXONE [Suspect]
     Active Substance: GLATIRAMER ACETATE
     Indication: Product used for unknown indication
     Dosage: USING COPAXONE FOR 8 TO 9 YEARS
     Route: 065
     Dates: start: 202511

REACTIONS (13)
  - Chest discomfort [Unknown]
  - Abdominal pain [Unknown]
  - Pain [Unknown]
  - Heart rate increased [Unknown]
  - Injection site erythema [Unknown]
  - Injection site nodule [Unknown]
  - Injection site pain [Unknown]
  - Flushing [Unknown]
  - Pruritus [Unknown]
  - Injection site warmth [Unknown]
  - Accidental exposure to product [Unknown]
  - Erythema [Unknown]
  - Skin burning sensation [Unknown]

NARRATIVE: CASE EVENT DATE: 20251101
